FAERS Safety Report 4389883-1 (Version None)
Quarter: 2004Q2

REPORT INFORMATION
  Report Type: 
  Country: None (occurrence: None)
  Receive Date: 20040630
  Receipt Date: 20040621
  Transmission Date: 20050107
  Serious: No
  Sender: FDA-Public Use
  Company Number: 04H-089-0264746-00

PATIENT

DRUGS (1)
  1. PANCURONIUM [Suspect]

REACTIONS (2)
  - CONVULSION [None]
  - MEDICATION ERROR [None]
